FAERS Safety Report 6239759-X (Version None)
Quarter: 2009Q2

REPORT INFORMATION
  Report Type: 
  Country: None (occurrence: None)
  Receive Date: 20090619
  Receipt Date: 20090611
  Transmission Date: 20091009
  Serious: Yes (Other)
  Sender: FDA-Public Use
  Company Number: A0791827A

PATIENT
  Age: 44 Year
  Sex: Female
  Weight: 111.1766 kg

DRUGS (14)
  1. BUPROPION HYDROCHLORIDE -EXTENDED RELEASE [Suspect]
     Indication: DEPRESSION
     Dosage: 150 MG / PER DAY / ORAL
     Route: 048
     Dates: start: 20040101
  2. FLUTICASONE+SALMETEROL UNSPECIFIED INHALER DEVICE (FLUTICASONE+SALMETE [Suspect]
     Indication: BRONCHITIS
     Dosage: 1 PUFF(S) / TWICE PER DAY / INHALED
     Route: 055
     Dates: start: 20090201
  3. PRIMIDONE TABLET (PRIMIDONE) [Suspect]
     Indication: EPILEPSY
     Dosage: 250 GRAM(S) / ORAL
     Route: 048
     Dates: start: 20010101
  4. METFORMIN HYDROCHLORIDE [Suspect]
     Indication: BLOOD TESTOSTERONE ABNORMAL
     Dosage: 500 MG / TWICE PER DAY / ORAL
     Route: 048
     Dates: start: 20040101
  5. LITHIUM CARBONATE [Suspect]
     Indication: AFFECTIVE DISORDER
     Dosage: 300 MG / TWICE PER DAY / ORAL
     Route: 048
     Dates: start: 20040101
  6. OESTRADIOL                 (FORMULATION UNKNOWN) (ESTRADIOL) [Suspect]
     Indication: HYSTERECTOMY
     Dosage: 2 MG / TWICE PER DAY / ORAL
     Route: 048
     Dates: start: 20060101
  7. DICYCLOMINE HYDROCHLORIDE [Suspect]
     Indication: DYSPEPSIA
     Dosage: 10 MG / FOUR TIMES PER DAY / ORAL
     Route: 048
     Dates: start: 20070101
  8. ELETRIPTAN HYDROBROMIDE [Suspect]
     Indication: MIGRAINE
     Dosage: 20 MG / AT NIGHT / ORAL
     Route: 048
     Dates: start: 20030101
  9. LANSOPRAZOLE  (FORMULATION UNKNOWN) [Suspect]
     Indication: DYSPEPSIA
     Dosage: 30 MG / TWICE PER DAY / ORAL
     Route: 048
     Dates: start: 20030101
  10. BUPROPION HYDROCHLORIDE  (FORMULATION UNKNOWN [Suspect]
     Indication: SEASONAL AFFECTIVE DISORDER
     Dosage: 75 MG / PER DAY / ORAL
     Route: 048
     Dates: start: 20010101
  11. CLOTRIMAZOLE CREAM (CLOTRIMAZOLE) [Suspect]
     Indication: FUNGAL INFECTION
     Dates: start: 20070101
  12. MICONAZOLE (FORMULATION UNKNOWN) (MICONAZOLE) [Suspect]
     Indication: ONYCHOMYCOSIS
     Dosage: TOPICAL
     Route: 061
     Dates: start: 20080101
  13. LEVOSALBUTAMOL [Suspect]
     Indication: ASTHMA
     Dosage: 1 PUFF(S) / AT NIGHT / INHALED
     Route: 055
     Dates: start: 20080601
  14. SUCRALFATE SUSPENSION          (SUCRALFATE) [Suspect]
     Indication: DYSPEPSIA
     Dosage: 1 GRAM(S) / FOUR TIMES PER DAY / ORAL
     Route: 048
     Dates: start: 20080101

REACTIONS (6)
  - ALTERED STATE OF CONSCIOUSNESS [None]
  - AURICULAR SWELLING [None]
  - BLINDNESS TRANSIENT [None]
  - DEAFNESS TRANSITORY [None]
  - FEELING ABNORMAL [None]
  - HYPERACUSIS [None]
